FAERS Safety Report 15085255 (Version 1)
Quarter: 2018Q2

REPORT INFORMATION
  Report Type: Spontaneous
  Country: GR (occurrence: GR)
  Receive Date: 20180628
  Receipt Date: 20180628
  Transmission Date: 20180711
  Serious: Yes (Other)
  Sender: FDA-Public Use
  Company Number: GR-SHIRE-GR201822671

PATIENT

DRUGS (1)
  1. KIOVIG [Suspect]
     Active Substance: HUMAN IMMUNOGLOBULIN G
     Indication: THROMBOCYTOPENIA
     Dosage: THE ADMINISTRATION OF THE SUSPECT DRUG WAS DISCONTINUED AFTER RECEIVING OF THE 7TH DOSE, AFTER RE...
     Route: 042
     Dates: start: 20140228, end: 20140302

REACTIONS (3)
  - Headache [Recovered/Resolved]
  - Eyelid oedema [Recovered/Resolved]
  - Conjunctivitis [Recovered/Resolved]

NARRATIVE: CASE EVENT DATE: 20140302
